FAERS Safety Report 6812566-2 (Version None)
Quarter: 2010Q3

REPORT INFORMATION
  Report Type: 
  Country: None (occurrence: None)
  Receive Date: 20100701
  Receipt Date: 20100621
  Transmission Date: 20110219
  Serious: Yes (Death, Other)
  Sender: FDA-Public Use
  Company Number: CN-PFIZER INC-2010040783

PATIENT
  Age: 46 Year

DRUGS (4)
  1. SULPERAZON [Suspect]
     Indication: INFECTION
     Dosage: 1.5 G, 3X/DAY
     Route: 042
     Dates: start: 20100128, end: 20100208
  2. PIPERACILLIN SODIUM W/TAZOBACTAM SODIUM [Concomitant]
     Dosage: 4.5 G, 2X/DAY
     Route: 042
     Dates: start: 20100119, end: 20100128
  3. NORVANCOMYCIN HYDROCHLORIDE [Concomitant]
     Dosage: 0.4 G, 2X/DAY
     Route: 042
     Dates: start: 20100121, end: 20100203
  4. DIOVAN [Concomitant]
     Dosage: 80 MG, 1X/DAY
     Route: 048
     Dates: start: 20100119, end: 20100330

REACTIONS (2)
  - DERMATITIS EXFOLIATIVE [None]
  - HEPATIC LESION [None]
